FAERS Safety Report 6516581-8 (Version None)
Quarter: 2009Q4

REPORT INFORMATION
  Report Type: 
  Country: None (occurrence: None)
  Receive Date: 20091223
  Receipt Date: 20091221
  Transmission Date: 20100525
  Serious: Yes (Other)
  Sender: FDA-Public Use
  Company Number: US-ELI_LILLY_AND_COMPANY-US200912004686

PATIENT
  Sex: Female
  Weight: 112.93 kg

DRUGS (14)
  1. BYETTA [Suspect]
     Indication: TYPE 2 DIABETES MELLITUS
     Dosage: 5 UG, 2/D
     Route: 058
     Dates: start: 20090201, end: 20090301
  2. BYETTA [Suspect]
     Dosage: 10 UG, 2/D
     Route: 058
     Dates: start: 20090301
  3. LOPRESSOR [Concomitant]
     Indication: BLOOD PRESSURE
     Dosage: 15 MG, DAILY (1/D)
  4. SPIRONOLACTONE [Concomitant]
     Indication: BLOOD PRESSURE
     Dosage: 100 MG, DAILY (1/D)
  5. PREMARIN [Concomitant]
     Indication: HORMONE REPLACEMENT THERAPY
  6. PRILOSEC [Concomitant]
     Dosage: UNK, DAILY (1/D)
  7. TRILEPTAL [Concomitant]
     Indication: BIPOLAR DISORDER
     Dosage: 450 MG, EACH EVENING
  8. LITHIUM CARBONATE [Concomitant]
     Indication: BIPOLAR DISORDER
     Dosage: 600 MG, EACH EVENING
  9. FLEXERIL [Concomitant]
     Indication: BACK PAIN
     Dosage: 10 MG, AS NEEDED
  10. MOBIC [Concomitant]
     Indication: ARTHRITIS
     Dosage: 7.5 MG, DAILY (1/D)
  11. CRESTOR [Concomitant]
     Indication: BLOOD CHOLESTEROL
     Dosage: 5 MG, UNK
  12. SINGULAIR [Concomitant]
  13. SYMBICORT [Concomitant]
  14. NASONEX [Concomitant]

REACTIONS (6)
  - GLOSSODYNIA [None]
  - HEADACHE [None]
  - NECK PAIN [None]
  - PRECANCEROUS MUCOSAL LESION [None]
  - VISUAL ACUITY REDUCED [None]
  - WEIGHT DECREASED [None]
